FAERS Safety Report 4803377-8 (Version None)
Quarter: 2005Q4

REPORT INFORMATION
  Report Type: 
  Country: None (occurrence: None)
  Receive Date: 20051019
  Receipt Date: 20051007
  Transmission Date: 20060501
  Serious: Yes (Other)
  Sender: FDA-Public Use
  Company Number: CH-JNJFOC-20051001651

PATIENT
  Age: 54 Year
  Sex: Female

DRUGS (8)
  1. RISPERDAL [Suspect]
     Route: 048
  2. RISPERDAL [Suspect]
     Route: 048
  3. RISPERDAL [Suspect]
     Route: 048
  4. RISPERDAL [Suspect]
     Route: 048
  5. LITHLOFOR [Concomitant]
     Route: 048
     Dates: start: 19950101
  6. SORTIS [Concomitant]
     Route: 048
     Dates: start: 20020101
  7. TRAZODONE [Concomitant]
     Route: 048
     Dates: start: 20050101
  8. CIPRALEX [Concomitant]
     Route: 048
     Dates: start: 20050720

REACTIONS (3)
  - DYSPHAGIA [None]
  - OROPHARYNGEAL SPASM [None]
  - TREMOR [None]
